FAERS Safety Report 19708238 (Version 1)
Quarter: 2021Q3

REPORT INFORMATION
  Report Type: Report from Study
  Country: US (occurrence: US)
  Receive Date: 20210816
  Receipt Date: 20210816
  Transmission Date: 20211014
  Serious: Yes (Hospitalization)
  Sender: FDA-Public Use
  Company Number: US-BAYER-2021-116387

PATIENT
  Age: 64 Year
  Sex: Female

DRUGS (10)
  1. NEXAVAR [Suspect]
     Active Substance: SORAFENIB
     Indication: HEPATOCELLULAR CARCINOMA
     Dosage: 600 MG DAILY (2 TABLET IN MORNING AND 1 TABLET IN EVENING FOR 2 WEEK)
     Route: 048
     Dates: start: 20210401, end: 20210407
  2. SPIRONOLACTONE. [Concomitant]
     Active Substance: SPIRONOLACTONE
     Dosage: UNK
  3. VITAMIN B1 [Concomitant]
     Active Substance: THIAMINE HYDROCHLORIDE
     Dosage: UNK
  4. AVEENO [Concomitant]
     Active Substance: DIMETHICONE\HOMOSALATE\OCTINOXATE\OCTISALATE\TITANIUM DIOXIDE
     Dosage: UNK
  5. NEXAVAR [Suspect]
     Active Substance: SORAFENIB
     Indication: HEPATOCELLULAR CARCINOMA
     Dosage: 800 MG DAILY (2 TABLET IN MORNING AND 2 TABLET IN EVENING FOR 3 WEEK)
     Route: 048
     Dates: start: 20210408
  6. NEXAVAR [Suspect]
     Active Substance: SORAFENIB
     Indication: HEPATOCELLULAR CARCINOMA
     Dosage: 400 MG, BID
     Route: 048
  7. NEXAVAR [Suspect]
     Active Substance: SORAFENIB
     Indication: HEPATOCELLULAR CARCINOMA
     Dosage: 400 MG DAILY (1 TABLET IN MORNING AND 1 TABLET IN EVENING FOR 1 WEEK)
     Route: 048
     Dates: start: 20210325, end: 20210331
  8. NEXAVAR [Suspect]
     Active Substance: SORAFENIB
     Indication: HEPATOCELLULAR CARCINOMA
     Dosage: 400 MG, BID
     Route: 048
  9. FOLIC ACID. [Concomitant]
     Active Substance: FOLIC ACID
     Dosage: UNK
  10. LACTULOSE. [Concomitant]
     Active Substance: LACTULOSE
     Dosage: UNK

REACTIONS (22)
  - Face oedema [Not Recovered/Not Resolved]
  - Pain in jaw [Unknown]
  - Pruritus [Unknown]
  - Hypotension [Not Recovered/Not Resolved]
  - Gingival pain [None]
  - Decreased appetite [None]
  - Rash pruritic [None]
  - Off label use [Unknown]
  - Ear pruritus [Unknown]
  - Peripheral swelling [Not Recovered/Not Resolved]
  - Blood bilirubin increased [Recovered/Resolved with Sequelae]
  - Oral pain [Unknown]
  - Stomatitis [Not Recovered/Not Resolved]
  - Oedema peripheral [Not Recovered/Not Resolved]
  - General physical condition abnormal [Not Recovered/Not Resolved]
  - Dry skin [None]
  - Oral mucosal scab [Unknown]
  - Glossodynia [Not Recovered/Not Resolved]
  - Cardiac disorder [Not Recovered/Not Resolved]
  - Asthenia [None]
  - Dysgeusia [Unknown]
  - Oral discomfort [Unknown]

NARRATIVE: CASE EVENT DATE: 20210325
